FAERS Safety Report 13068536 (Version 1)
Quarter: 2016Q4

REPORT INFORMATION
  Report Type: Spontaneous
  Country: US (occurrence: US)
  Receive Date: 20161228
  Receipt Date: 20161228
  Transmission Date: 20170207
  Serious: Yes (Other)
  Sender: FDA-Public Use
  Company Number: None

PATIENT

DRUGS (1)
  1. SPIRONOLACTONE. [Suspect]
     Active Substance: SPIRONOLACTONE
     Route: 048

REACTIONS (3)
  - Somnolence [None]
  - Electrocardiogram T wave peaked [None]
  - Hyperkalaemia [None]

NARRATIVE: CASE EVENT DATE: 20160824
